FAERS Safety Report 4877479-4 (Version None)
Quarter: 2006Q1

REPORT INFORMATION
  Report Type: 
  Country: None (occurrence: None)
  Receive Date: 20060109
  Receipt Date: 20051222
  Transmission Date: 20060701
  Serious: Yes (Life-Threatening)
  Sender: FDA-Public Use
  Company Number: 2006BI000059

PATIENT
  Age: 63 Year
  Weight: 74 kg

DRUGS (6)
  1. ZEVALIN [Suspect]
     Indication: BONE MARROW CONDITIONING REGIMEN
     Dosage: 1X; IV
     Route: 042
     Dates: start: 20051121, end: 20051121
  2. ZEVALIN [Suspect]
     Indication: BONE MARROW CONDITIONING REGIMEN
     Dosage: 0.4 MCI/KG; 1X; IV
     Route: 042
     Dates: start: 20051201, end: 20051201
  3. RITUXIMAB [Concomitant]
  4. RITUXIMAB [Concomitant]
  5. ANTINEOPLASTIC AND IMMUNOSUPPRESSIVE AGENTS [Concomitant]
  6. ANTINEOPLASTIC AND IMMUNOSUPPRESSIVE AGENTS [Concomitant]

REACTIONS (4)
  - DEPRESSED LEVEL OF CONSCIOUSNESS [None]
  - HYPOREFLEXIA [None]
  - MUCOSAL INFLAMMATION [None]
  - OBSTRUCTIVE AIRWAYS DISORDER [None]
